FAERS Safety Report 25974590 (Version 1)
Quarter: 2025Q4

REPORT INFORMATION
  Report Type: Spontaneous
  Country: US (occurrence: US)
  Receive Date: 20251029
  Receipt Date: 20251029
  Transmission Date: 20260117
  Serious: Yes (Hospitalization)
  Sender: TEVA
  Company Number: US-TEVA-VS-3384926

PATIENT
  Age: 17 Year
  Sex: Female

DRUGS (2)
  1. HALOPERIDOL [Suspect]
     Active Substance: HALOPERIDOL
     Indication: Aggression
     Dosage: OVER A COURSE OF 15 MIN
     Route: 030
  2. LORAZEPAM [Concomitant]
     Active Substance: LORAZEPAM
     Indication: Aggression
     Route: 030

REACTIONS (1)
  - Catatonia [Recovered/Resolved]
